FAERS Safety Report 18501147 (Version 1)
Quarter: 2020Q4

REPORT INFORMATION
  Report Type: Spontaneous
  Country: ES (occurrence: ES)
  Receive Date: 20201113
  Receipt Date: 20201113
  Transmission Date: 20210114
  Serious: Yes (Other)
  Sender: FDA-Public Use
  Company Number: ES-MDD US OPERATIONS-E2B_00003559

PATIENT
  Age: 86 Year

DRUGS (1)
  1. SAFINAMIDE [Suspect]
     Active Substance: SAFINAMIDE
     Indication: PARKINSON^S DISEASE
     Dosage: NOT PROVIDED

REACTIONS (2)
  - Drug ineffective [Unknown]
  - Syncope [Unknown]
